FAERS Safety Report 5377665-3 (Version None)
Quarter: 2007Q3

REPORT INFORMATION
  Report Type: 
  Country: None (occurrence: None)
  Receive Date: 20070703
  Receipt Date: 20070625
  Transmission Date: 20080115
  Serious: Yes (Death)
  Sender: FDA-Public Use
  Company Number: US-PFIZER INC-2007036514

PATIENT
  Sex: Male

DRUGS (3)
  1. CHANTIX [Suspect]
  2. OXYGEN [Concomitant]
  3. DRUG, UNSPECIFIED [Concomitant]

REACTIONS (3)
  - ANOREXIA [None]
  - DEATH [None]
  - REGURGITATION [None]
